FAERS Safety Report 25075976 (Version 1)
Quarter: 2025Q1

REPORT INFORMATION
  Report Type: Spontaneous
  Country: US (occurrence: US)
  Receive Date: 20250313
  Receipt Date: 20250313
  Transmission Date: 20250408
  Serious: No
  Sender: CALLIDITAS THERAPEUTICS AB
  Company Number: US-Calliditas-2025CAL00616

PATIENT
  Age: 39 Year
  Sex: Female

DRUGS (28)
  1. TARPEYO [Suspect]
     Active Substance: BUDESONIDE
     Indication: IgA nephropathy
     Route: 048
  2. ADVAIR HFA [Concomitant]
     Active Substance: FLUTICASONE PROPIONATE\SALMETEROL XINAFOATE
  3. ALBUTEROL SULFATE [Concomitant]
     Active Substance: ALBUTEROL SULFATE
  4. ATORVASTATIN [Concomitant]
     Active Substance: ATORVASTATIN
  5. CARVEDILOL [Concomitant]
     Active Substance: CARVEDILOL
  6. CINACALCET [Concomitant]
     Active Substance: CINACALCET
  7. DULOXETINE [Concomitant]
     Active Substance: DULOXETINE
  8. PEPCID [Concomitant]
     Active Substance: FAMOTIDINE
  9. IRON [Concomitant]
     Active Substance: IRON
  10. FISH OIL\OMEGA-3 FATTY ACIDS [Concomitant]
     Active Substance: FISH OIL\OMEGA-3 FATTY ACIDS
  11. FOLIC ACID [Concomitant]
     Active Substance: FOLIC ACID
  12. FUROSEMIDE [Concomitant]
     Active Substance: FUROSEMIDE
  13. LANTUS [Concomitant]
     Active Substance: INSULIN GLARGINE
  14. JARDIANCE [Concomitant]
     Active Substance: EMPAGLIFLOZIN
  15. LEVOTHYROXINE [Concomitant]
     Active Substance: LEVOTHYROXINE
  16. INSULIN LISPRO [Concomitant]
     Active Substance: INSULIN LISPRO
  17. LORATADINE [Concomitant]
     Active Substance: LORATADINE
  18. MAGNESIUM CLOFIBRATE [Concomitant]
     Active Substance: MAGNESIUM CLOFIBRATE
  19. DEPO-PROVERA [Concomitant]
     Active Substance: MEDROXYPROGESTERONE ACETATE
  20. MOUNJARO [Concomitant]
     Active Substance: TIRZEPATIDE
  21. MONTELUKAST [Concomitant]
     Active Substance: MONTELUKAST
  22. MYCOPHENOLATE MOFETIL [Concomitant]
     Active Substance: MYCOPHENOLATE MOFETIL
  23. NIFEDIPINE [Concomitant]
     Active Substance: NIFEDIPINE
  24. ONDANSETRON [Concomitant]
     Active Substance: ONDANSETRON
  25. SODIUM BICARBONATE [Concomitant]
     Active Substance: SODIUM BICARBONATE
  26. PREDNISONE [Concomitant]
     Active Substance: PREDNISONE
  27. TACROLIMUS [Concomitant]
     Active Substance: TACROLIMUS
  28. VITAMIN D NOS [Concomitant]
     Active Substance: CHOLECALCIFEROL\ERGOCALCIFEROL

REACTIONS (4)
  - Swelling [Recovering/Resolving]
  - Blood pressure increased [Recovering/Resolving]
  - Drug ineffective [Unknown]
  - Peripheral swelling [Recovering/Resolving]
